FAERS Safety Report 10984360 (Version 1)
Quarter: 2015Q2

REPORT INFORMATION
  Report Type: Spontaneous
  Country: DE (occurrence: DE)
  Receive Date: 20150403
  Receipt Date: 20150403
  Transmission Date: 20150821
  Serious: Yes (Other)
  Sender: FDA-Public Use
  Company Number: DE-BAUSCH-BL-2015-010388

PATIENT
  Age: 78 Year
  Sex: Female
  Weight: 75 kg

DRUGS (2)
  1. TIM-OPHTAL 0.5% [Suspect]
     Active Substance: TIMOLOL MALEATE
  2. BELOC-ZOK [Concomitant]
     Active Substance: METOPROLOL SUCCINATE
     Indication: PRODUCT USED FOR UNKNOWN INDICATION
     Dosage: FOR APPROXIMATELY 10 YEARS

REACTIONS (4)
  - Asthenia [Not Recovered/Not Resolved]
  - Nausea [Not Recovered/Not Resolved]
  - Suicidal ideation [Not Recovered/Not Resolved]
  - Dizziness [Not Recovered/Not Resolved]
